FAERS Safety Report 9557769 (Version 1)
Quarter: 2013Q3

REPORT INFORMATION
  Report Type: Spontaneous
  Country: US (occurrence: None)
  Receive Date: 20130726
  Receipt Date: 20130726
  Transmission Date: 20140515
  Serious: Yes (Hospitalization)
  Sender: FDA-Public Use
  Company Number: UTC-027761

PATIENT
  Age: 32 Year
  Sex: Male

DRUGS (2)
  1. REMODULIN (0.3, INJECTION FOR INFUSION) (TREPROSTINIL SODIUM) [Suspect]
     Dosage: 181.44 UG.KG (0.126 UG/KG, 1 IN MIN)
     Route: 041
     Dates: start: 20050627
  2. REVATION(SILDENAFIL CITRATE) [Concomitant]

REACTIONS (1)
  - Oedema [None]
